FAERS Safety Report 10161338 (Version 1)
Quarter: 2014Q2

REPORT INFORMATION
  Report Type: Spontaneous
  Country: US (occurrence: US)
  Receive Date: 20140509
  Receipt Date: 20140509
  Transmission Date: 20141212
  Serious: No
  Sender: FDA-Public Use
  Company Number: US-009507513-1404USA015150

PATIENT
  Sex: Female

DRUGS (2)
  1. ASMANEX TWISTHALER [Suspect]
     Dosage: UNK
  2. ASMANEX TWISTHALER [Suspect]
     Dosage: UNK

REACTIONS (3)
  - Exposure via direct contact [Unknown]
  - Product container issue [Unknown]
  - No adverse event [Unknown]
